FAERS Safety Report 6139607-2 (Version None)
Quarter: 2009Q1

REPORT INFORMATION
  Report Type: 
  Country: None (occurrence: None)
  Receive Date: 20090330
  Receipt Date: 20080320
  Transmission Date: 20090719
  Serious: Yes (Other)
  Sender: FDA-Public Use
  Company Number: 169031USA

PATIENT
  Age: 8 Month
  Sex: Female

DRUGS (1)
  1. AMOXICILLIN AND CLAVULANATE POTASSIUM [Suspect]
     Indication: EAR INFECTION
     Dosage: 600 MG/5 ML, 1/2 TEASPOON TWICE DAILY (2 IN 1 D), ORAL
     Route: 048
     Dates: start: 20070101

REACTIONS (6)
  - DEHYDRATION [None]
  - FOAMING AT MOUTH [None]
  - MEDICATION ERROR [None]
  - MUSCULAR WEAKNESS [None]
  - OVERDOSE [None]
  - VOMITING [None]
